FAERS Safety Report 22320891 (Version 8)
Quarter: 2023Q4

REPORT INFORMATION
  Report Type: Report from Study
  Country: US (occurrence: US)
  Receive Date: 20230515
  Receipt Date: 20231009
  Transmission Date: 20240110
  Serious: Yes (Hospitalization, Other)
  Sender: FDA-Public Use
  Company Number: US-TAKEDA-2023TUS047068

PATIENT
  Age: 1 Year
  Sex: Male
  Weight: 14 kg

DRUGS (15)
  1. TEDUGLUTIDE [Suspect]
     Active Substance: TEDUGLUTIDE
     Indication: Short-bowel syndrome
     Dosage: 0.06 MILLILITER, QD
     Route: 058
     Dates: start: 202303
  2. TEDUGLUTIDE [Suspect]
     Active Substance: TEDUGLUTIDE
     Indication: Short-bowel syndrome
     Dosage: 0.06 MILLILITER, QD
     Route: 058
     Dates: start: 202303
  3. TEDUGLUTIDE [Suspect]
     Active Substance: TEDUGLUTIDE
     Indication: Short-bowel syndrome
     Dosage: 0.06 MILLILITER, QD
     Route: 058
     Dates: start: 202303
  4. TEDUGLUTIDE [Suspect]
     Active Substance: TEDUGLUTIDE
     Indication: Short-bowel syndrome
     Dosage: 0.06 MILLILITER, QD
     Route: 058
     Dates: start: 202303
  5. TEDUGLUTIDE [Suspect]
     Active Substance: TEDUGLUTIDE
     Indication: Malabsorption
     Dosage: 0.06 MILLILITER, QD
     Route: 058
     Dates: start: 20230420
  6. TEDUGLUTIDE [Suspect]
     Active Substance: TEDUGLUTIDE
     Indication: Malabsorption
     Dosage: 0.06 MILLILITER, QD
     Route: 058
     Dates: start: 20230420
  7. TEDUGLUTIDE [Suspect]
     Active Substance: TEDUGLUTIDE
     Indication: Malabsorption
     Dosage: 0.06 MILLILITER, QD
     Route: 058
     Dates: start: 20230420
  8. TEDUGLUTIDE [Suspect]
     Active Substance: TEDUGLUTIDE
     Indication: Malabsorption
     Dosage: 0.06 MILLILITER, QD
     Route: 058
     Dates: start: 20230420
  9. TEDUGLUTIDE [Suspect]
     Active Substance: TEDUGLUTIDE
     Dosage: 0.06 MILLILITER, QD
     Route: 058
     Dates: start: 202304
  10. TEDUGLUTIDE [Suspect]
     Active Substance: TEDUGLUTIDE
     Dosage: 0.06 MILLILITER, QD
     Route: 058
     Dates: start: 202304
  11. TEDUGLUTIDE [Suspect]
     Active Substance: TEDUGLUTIDE
     Dosage: 0.06 MILLILITER, QD
     Route: 058
     Dates: start: 202304
  12. TEDUGLUTIDE [Suspect]
     Active Substance: TEDUGLUTIDE
     Dosage: 0.06 MILLILITER, QD
     Route: 058
     Dates: start: 202304
  13. LOMOTIL [Concomitant]
     Active Substance: ATROPINE SULFATE\DIPHENOXYLATE HYDROCHLORIDE
     Indication: Short-bowel syndrome
     Dosage: 5 MILLILITER, QID
     Route: 065
  14. LOPERAMIDE [Concomitant]
     Active Substance: LOPERAMIDE
     Indication: Short-bowel syndrome
     Dosage: 2 MILLIGRAM, TID
     Route: 065
  15. LANSOPRAZOLE [Concomitant]
     Active Substance: LANSOPRAZOLE
     Indication: Gastrooesophageal reflux disease
     Dosage: 6 MILLILITER, QD
     Route: 065

REACTIONS (10)
  - Feeding intolerance [Recovering/Resolving]
  - Medical device site infection [Recovered/Resolved]
  - Rhinovirus infection [Recovered/Resolved]
  - Dehydration [Recovered/Resolved]
  - Viral infection [Recovered/Resolved]
  - Eating disorder [Recovering/Resolving]
  - Retching [Recovering/Resolving]
  - Vomiting [Recovering/Resolving]
  - Respiratory tract infection viral [Recovered/Resolved]
  - Product dose omission issue [Recovered/Resolved]

NARRATIVE: CASE EVENT DATE: 20230502
